FAERS Safety Report 17095038 (Version 13)
Quarter: 2021Q2

REPORT INFORMATION
  Report Type: Report from Study
  Country: None (occurrence: FR)
  Receive Date: 20191130
  Receipt Date: 20210422
  Transmission Date: 20210716
  Serious: Yes (Death, Other)
  Sender: FDA-Public Use
  Company Number: FR-ABBVIE-19K-056-2640578-00

PATIENT
  Age: 61 Year
  Sex: Female
  Weight: 101 kg

DRUGS (28)
  1. VENCLYXTO [Suspect]
     Active Substance: VENETOCLAX
     Route: 048
     Dates: start: 20190104, end: 20190402
  2. TRAMADOL. [Concomitant]
     Active Substance: TRAMADOL
     Route: 048
     Dates: start: 20181227, end: 20190103
  3. TRAMADOL. [Concomitant]
     Active Substance: TRAMADOL
     Route: 048
     Dates: start: 20181218, end: 20181226
  4. CHOLURSO [Concomitant]
     Active Substance: URSODIOL
     Indication: HEPATIC STEATOSIS
     Dates: start: 20170914
  5. STILNOX [Concomitant]
     Active Substance: ZOLPIDEM TARTRATE
     Indication: INSOMNIA
     Dates: start: 200909
  6. VENCLYXTO [Suspect]
     Active Substance: VENETOCLAX
     Indication: CHRONIC LYMPHOCYTIC LEUKAEMIA
     Route: 048
     Dates: start: 20181204, end: 20181210
  7. TRAMADOL. [Concomitant]
     Active Substance: TRAMADOL
     Route: 048
     Dates: start: 20181204, end: 20181210
  8. SPECIAFOLDINE [Concomitant]
     Active Substance: FOLIC ACID
     Indication: ANAEMIA PROPHYLAXIS
     Route: 065
     Dates: start: 20191008
  9. VENCLYXTO [Suspect]
     Active Substance: VENETOCLAX
     Route: 048
     Dates: start: 20181227, end: 20190102
  10. COAPROVEL [Concomitant]
     Active Substance: HYDROCHLOROTHIAZIDE\IRBESARTAN
     Indication: HYPERTENSION
     Dates: start: 20050606
  11. OMEPRAZOLE. [Concomitant]
     Active Substance: OMEPRAZOLE
     Indication: PROPHYLAXIS
     Dates: start: 2020
  12. VENCLYXTO [Suspect]
     Active Substance: VENETOCLAX
     Route: 048
     Dates: start: 20190409, end: 20190701
  13. TRAMADOL. [Concomitant]
     Active Substance: TRAMADOL
     Route: 048
     Dates: start: 20190104, end: 20190402
  14. ZOLPIDEM [Concomitant]
     Active Substance: ZOLPIDEM TARTRATE
     Indication: PRODUCT USED FOR UNKNOWN INDICATION
     Dates: start: 200909
  15. LERCAN [Concomitant]
     Active Substance: LERCANIDIPINE
     Indication: HYPERTENSION
     Dates: start: 201303
  16. VENCLYXTO [Suspect]
     Active Substance: VENETOCLAX
     Route: 048
     Dates: start: 20191008, end: 20200930
  17. CHOLURSO [Concomitant]
     Active Substance: URSODIOL
     Indication: HEPATIC STEATOSIS
  18. VENCLYXTO [Suspect]
     Active Substance: VENETOCLAX
     Route: 048
     Dates: start: 20181211, end: 20181217
  19. TOCOPHEROL [Concomitant]
     Active Substance: TOCOPHEROL
     Indication: HEPATIC STEATOSIS
     Dates: start: 20170914
  20. NOVOMIX [Concomitant]
     Active Substance: INSULIN ASPART
     Indication: DIABETES MELLITUS
     Dates: start: 201303
  21. VENCLYXTO [Suspect]
     Active Substance: VENETOCLAX
     Route: 048
     Dates: start: 20181218, end: 20181226
  22. TRAMADOL. [Concomitant]
     Active Substance: TRAMADOL
     Indication: PRODUCT USED FOR UNKNOWN INDICATION
     Dates: start: 20190529
  23. DOLIPRANE [Concomitant]
     Active Substance: ACETAMINOPHEN
     Indication: PAIN
     Dosage: IF NEEDED
     Dates: start: 200703
  24. IMBRUVICA [Suspect]
     Active Substance: IBRUTINIB
     Indication: CHRONIC LYMPHOCYTIC LEUKAEMIA
     Route: 065
     Dates: start: 20170215, end: 20190104
  25. VENCLYXTO [Suspect]
     Active Substance: VENETOCLAX
     Route: 048
     Dates: start: 20190702, end: 20191007
  26. TOCOPHEROL [Concomitant]
     Active Substance: TOCOPHEROL
     Indication: HEPATIC STEATOSIS
  27. TRAMADOL. [Concomitant]
     Active Substance: TRAMADOL
     Route: 048
     Dates: start: 20181211, end: 20181217
  28. TRULICITY [Concomitant]
     Active Substance: DULAGLUTIDE
     Indication: DIABETES MELLITUS INADEQUATE CONTROL
     Dates: start: 2019

REACTIONS (21)
  - Musculoskeletal discomfort [Recovered/Resolved]
  - Pain in extremity [Not Recovered/Not Resolved]
  - Neutropenia [Recovered/Resolved]
  - Anaemia [Recovered/Resolved with Sequelae]
  - Thrombocytopenia [Recovered/Resolved with Sequelae]
  - Hepatic cirrhosis [Not Recovered/Not Resolved]
  - Therapy partial responder [Unknown]
  - General physical health deterioration [Fatal]
  - Hypocalcaemia [Recovered/Resolved]
  - Off label use [Recovered/Resolved]
  - Diarrhoea [Recovered/Resolved]
  - Asthenia [Not Recovered/Not Resolved]
  - Chronic lymphocytic leukaemia [Unknown]
  - Neutropenia [Not Recovered/Not Resolved]
  - Bronchitis [Recovered/Resolved]
  - Thrombocytopenia [Not Recovered/Not Resolved]
  - Oedema peripheral [Not Recovered/Not Resolved]
  - Pneumocystis jirovecii pneumonia [Recovered/Resolved]
  - Portal hypertension [Not Recovered/Not Resolved]
  - Product use issue [Recovered/Resolved]
  - Bronchitis [Not Recovered/Not Resolved]

NARRATIVE: CASE EVENT DATE: 20181204
